FAERS Safety Report 6713976-4 (Version None)
Quarter: 2010Q2

REPORT INFORMATION
  Report Type: 
  Country: None (occurrence: None)
  Receive Date: 20100506
  Receipt Date: 20100429
  Transmission Date: 20101027
  Serious: Yes (Death, Other)
  Sender: FDA-Public Use
  Company Number: US-AMGEN-QUU402781

PATIENT
  Sex: Female

DRUGS (4)
  1. NPLATE [Suspect]
     Indication: IDIOPATHIC THROMBOCYTOPENIC PURPURA
     Dates: start: 20090430, end: 20091231
  2. CORTICOSTEROIDS [Concomitant]
     Dates: start: 20080722
  3. PREDNISONE [Concomitant]
     Dates: start: 20090407
  4. HYDREA [Concomitant]
     Dates: start: 20090922, end: 20091001

REACTIONS (6)
  - ACUTE MYELOMONOCYTIC LEUKAEMIA [None]
  - CHRONIC MYELOID LEUKAEMIA TRANSFORMATION [None]
  - CONFUSIONAL STATE [None]
  - DEATH [None]
  - THERAPEUTIC RESPONSE DECREASED [None]
  - THROMBOCYTOPENIA [None]
